FAERS Safety Report 5612191-5 (Version None)
Quarter: 2008Q1

REPORT INFORMATION
  Report Type: 
  Country: None (occurrence: None)
  Receive Date: 20080131
  Receipt Date: 20080131
  Transmission Date: 20080703
  Serious: Yes (Other)
  Sender: FDA-Public Use
  Company Number: None

PATIENT
  Age: 53 Year
  Sex: Male
  Weight: 106.5953 kg

DRUGS (2)
  1. CLOMIPHENE CITRATE [Suspect]
     Indication: ANDROGEN DEFICIENCY
     Dosage: 50 MG  3 TIMES A WEEK  PO  (DURATION: APPROX 3-4 MOS)
     Route: 048
  2. CLOMIPHENE CITRATE [Suspect]
     Indication: ERECTILE DYSFUNCTION
     Dosage: 50 MG  3 TIMES A WEEK  PO  (DURATION: APPROX 3-4 MOS)
     Route: 048

REACTIONS (1)
  - DEEP VEIN THROMBOSIS [None]
